FAERS Safety Report 15729667 (Version 1)
Quarter: 2018Q4

REPORT INFORMATION
  Report Type: Spontaneous
  Country: ES (occurrence: ES)
  Receive Date: 20181217
  Receipt Date: 20181217
  Transmission Date: 20190205
  Serious: Yes (Death, Other)
  Sender: FDA-Public Use
  Company Number: ES-SA-2018SA339308

PATIENT
  Age: 7 Month
  Sex: Male

DRUGS (1)
  1. MYOZYME [Suspect]
     Active Substance: ALGLUCOSIDASE ALFA
     Indication: GLYCOGEN STORAGE DISEASE TYPE II
     Dosage: UNK
     Route: 041
     Dates: start: 201807

REACTIONS (5)
  - Pyrexia [Unknown]
  - Bronchitis [Unknown]
  - Death [Fatal]
  - Pneumonitis [Unknown]
  - Immunodeficiency [Unknown]

NARRATIVE: CASE EVENT DATE: 2018
